FAERS Safety Report 19999099 (Version 1)
Quarter: 2021Q4

REPORT INFORMATION
  Report Type: Report from Study
  Country: IT (occurrence: IT)
  Receive Date: 20211026
  Receipt Date: 20211026
  Transmission Date: 20220303
  Serious: Yes (Other)
  Sender: FDA-Public Use
  Company Number: IT-TAKEDA-2021TUS063745

PATIENT
  Age: 73 Year
  Sex: Female

DRUGS (8)
  1. TEDUGLUTIDE [Suspect]
     Active Substance: TEDUGLUTIDE
     Indication: Short-bowel syndrome
     Dosage: 0.050 MILLIGRAM/KILOGRAM, QD
     Route: 065
     Dates: start: 20201118
  2. TEDUGLUTIDE [Suspect]
     Active Substance: TEDUGLUTIDE
     Indication: Short-bowel syndrome
     Dosage: 0.050 MILLIGRAM/KILOGRAM, QD
     Route: 065
     Dates: start: 20201118
  3. TEDUGLUTIDE [Suspect]
     Active Substance: TEDUGLUTIDE
     Indication: Short-bowel syndrome
     Dosage: 0.050 MILLIGRAM/KILOGRAM, QD
     Route: 065
     Dates: start: 20201118
  4. TEDUGLUTIDE [Suspect]
     Active Substance: TEDUGLUTIDE
     Indication: Short-bowel syndrome
     Dosage: 0.050 MILLIGRAM/KILOGRAM, QD
     Route: 065
     Dates: start: 20201118
  5. ANTHRALIN [Concomitant]
     Active Substance: ANTHRALIN
     Indication: Anal fissure
     Dosage: 999 UNK
     Route: 061
     Dates: start: 2021
  6. Covid-19 vaccine [Concomitant]
     Indication: COVID-19
     Dosage: 999 UNK,X1 ONC DOSE
     Route: 065
     Dates: start: 2021, end: 2021
  7. Motilex [Concomitant]
     Indication: Hiatus hernia
     Dosage: 0.50 MILLIGRAM, QD
     Route: 048
     Dates: start: 20210428
  8. Folina [Concomitant]
     Indication: Nutritional supplementation
     Dosage: 5 MILLIGRAM, QD
     Route: 048
     Dates: start: 202008, end: 2020

REACTIONS (3)
  - Hepatic fibrosis [Not Recovered/Not Resolved]
  - Dermatitis [Not Recovered/Not Resolved]
  - Anal fissure [Not Recovered/Not Resolved]

NARRATIVE: CASE EVENT DATE: 20210101
